FAERS Safety Report 4751330-5 (Version None)
Quarter: 2005Q3

REPORT INFORMATION
  Report Type: 
  Country: None (occurrence: None)
  Receive Date: 20050823
  Receipt Date: 20050823
  Transmission Date: 20060218
  Serious: Yes (Death, Other)
  Sender: FDA-Public Use
  Company Number: None

PATIENT
  Age: 76 Year
  Sex: Male

DRUGS (1)
  1. MORPHINE SULFATE [Suspect]
     Indication: NEOPLASM MALIGNANT
     Dosage: 1 TSP ORALLY
     Route: 048
     Dates: start: 20041208

REACTIONS (7)
  - DRUG DISPENSING ERROR [None]
  - DYSPHAGIA [None]
  - EYE ROLLING [None]
  - INCORRECT DOSE ADMINISTERED [None]
  - LOSS OF CONSCIOUSNESS [None]
  - MEDICATION ERROR [None]
  - OVERDOSE [None]
